FAERS Safety Report 19587797 (Version 1)
Quarter: 2021Q3

REPORT INFORMATION
  Report Type: Spontaneous
  Country: US (occurrence: US)
  Receive Date: 20210721
  Receipt Date: 20210721
  Transmission Date: 20211014
  Serious: No
  Sender: FDA-Public Use
  Company Number: US-ORGANON-O2107USA001254

PATIENT
  Age: 22 Year
  Sex: Female
  Weight: 53.97 kg

DRUGS (5)
  1. MELOXICAM. [Concomitant]
     Active Substance: MELOXICAM
     Dosage: UNK
  2. MIDODRINE [Concomitant]
     Active Substance: MIDODRINE
     Dosage: UNK
  3. ZOLOFT [Concomitant]
     Active Substance: SERTRALINE HYDROCHLORIDE
     Dosage: UNK
  4. PRAZOSIN. [Concomitant]
     Active Substance: PRAZOSIN
     Dosage: UNK
  5. NEXPLANON [Suspect]
     Active Substance: ETONOGESTREL
     Indication: CONTRACEPTION
     Dosage: 1 IMPLANT LEFT ARM, FOR 3 YEARS
     Route: 059
     Dates: start: 20181101

REACTIONS (1)
  - Heavy menstrual bleeding [Not Recovered/Not Resolved]

NARRATIVE: CASE EVENT DATE: 20210707
